FAERS Safety Report 9846165 (Version 1)
Quarter: 2014Q1

REPORT INFORMATION
  Report Type: Spontaneous
  Country: JP (occurrence: None)
  Receive Date: 20140123
  Receipt Date: 20140123
  Transmission Date: 20141002
  Serious: Yes (Hospitalization)
  Sender: FDA-Public Use
  Company Number: DSJ-2013-27634

PATIENT
  Age: 89 Year
  Sex: Female

DRUGS (3)
  1. OLMETEC [Suspect]
     Indication: HYPERTENSION
     Route: 048
  2. ARTIST [Suspect]
     Indication: CARDIAC FAILURE CHRONIC
     Route: 048
  3. AMLODIPINE (AMLODIPINE) (AMLODIPINE) [Concomitant]

REACTIONS (1)
  - Pneumonia aspiration [None]
